FAERS Safety Report 5478461-9 (Version None)
Quarter: 2007Q4

REPORT INFORMATION
  Report Type: 
  Country: None (occurrence: None)
  Receive Date: 20071005
  Receipt Date: 20070926
  Transmission Date: 20080405
  Serious: Yes (Other)
  Sender: FDA-Public Use
  Company Number: HQWYE341027SEP07

PATIENT
  Sex: Female

DRUGS (2)
  1. EFFEXOR XR [Suspect]
     Dosage: DOSE AND FREQUENCY UNSPECIFIED
     Route: 048
     Dates: end: 20070401
  2. EFFEXOR XR [Suspect]
     Dosage: ^TAPERED OFF^ DOSE AND FREQUENCY UNSPECIFIED
     Route: 048
     Dates: start: 20070401, end: 20070921

REACTIONS (6)
  - DIZZINESS [None]
  - DRUG DEPENDENCE [None]
  - DRUG WITHDRAWAL SYNDROME [None]
  - IMPAIRED DRIVING ABILITY [None]
  - NAUSEA [None]
  - PARAESTHESIA [None]
